FAERS Safety Report 8582286-5 (Version None)
Quarter: 2012Q3

REPORT INFORMATION
  Report Type: 
  Country: None (occurrence: None)
  Receive Date: 20120809
  Receipt Date: 20120731
  Transmission Date: 20120928
  Serious: Yes (Hospitalization, Other)
  Sender: FDA-Public Use
  Company Number: JP-ASTRAZENECA-2012SE42896

PATIENT
  Age: 22264 Day
  Sex: Male

DRUGS (3)
  1. ATACAND [Suspect]
     Route: 048
  2. LEUPROLIDE ACETATE [Interacting]
     Dosage: EVERY THREE MONTHS
     Route: 065
  3. METFORMIN HCL [Concomitant]
     Route: 065

REACTIONS (6)
  - MULTI-ORGAN FAILURE [None]
  - TOXICITY TO VARIOUS AGENTS [None]
  - DRUG INTERACTION [None]
  - RENAL FAILURE [None]
  - ANAEMIA [None]
  - DEHYDRATION [None]
